FAERS Safety Report 8564126-3 (Version None)
Quarter: 2012Q3

REPORT INFORMATION
  Report Type: 
  Country: None (occurrence: None)
  Receive Date: 20120727
  Receipt Date: 20120727
  Transmission Date: 20120928
  Serious: Yes (Hospitalization)
  Sender: FDA-Public Use
  Company Number: None

PATIENT
  Sex: Female

DRUGS (1)
  1. ADCIRCA [Suspect]
     Dosage: 20 MG DAILY PO
     Route: 048
     Dates: start: 20120630

REACTIONS (5)
  - SYNCOPE [None]
  - LACERATION [None]
  - CEREBRAL HAEMORRHAGE [None]
  - DYSPNOEA [None]
  - HEAD INJURY [None]
